FAERS Safety Report 6297651-9 (Version None)
Quarter: 2009Q3

REPORT INFORMATION
  Report Type: 
  Country: None (occurrence: None)
  Receive Date: 20090805
  Receipt Date: 20090728
  Transmission Date: 20100115
  Serious: Yes (Hospitalization)
  Sender: FDA-Public Use
  Company Number: DE-PFIZER INC-2009247754

PATIENT
  Age: 40 Year

DRUGS (3)
  1. ZELDOX [Suspect]
     Indication: DEPRESSION
     Dosage: UNK MG, UNK
     Route: 048
  2. ZELDOX [Suspect]
     Indication: BIPOLAR DISORDER
  3. ZELDOX [Suspect]
     Indication: PERSONALITY DISORDER

REACTIONS (3)
  - ABNORMAL BEHAVIOUR [None]
  - LISTLESS [None]
  - PERSONALITY CHANGE [None]
